FAERS Safety Report 18205776 (Version 1)
Quarter: 2020Q3

REPORT INFORMATION
  Report Type: Spontaneous
  Country: JP (occurrence: JP)
  Receive Date: 20200827
  Receipt Date: 20200827
  Transmission Date: 20201103
  Serious: Yes (Other)
  Sender: FDA-Public Use
  Company Number: JP-TOLMAR, INC.-20JP022515

PATIENT
  Age: 39 Year
  Sex: Female

DRUGS (4)
  1. ELIGARD [Suspect]
     Active Substance: LEUPROLIDE ACETATE
     Indication: UTERINE LEIOMYOMA
     Dosage: 30 MICROGRAM/KILOGRAM EVERY 4 WEEKS
     Route: 058
  2. ELIGARD [Suspect]
     Active Substance: LEUPROLIDE ACETATE
     Dosage: 30 MICROGRAM/KILOGRAM EVERY 4 WEEKS
     Route: 058
     Dates: start: 201901
  3. ELIGARD [Suspect]
     Active Substance: LEUPROLIDE ACETATE
     Dosage: 30 MICROGRAM/KILOGRAM EVERY 4 WEEKS
     Route: 058
  4. ELIGARD [Suspect]
     Active Substance: LEUPROLIDE ACETATE
     Dosage: 30 MICROGRAM/KILOGRAM EVERY 4 WEEKS
     Route: 058
     Dates: start: 201910

REACTIONS (2)
  - Relapsing-remitting multiple sclerosis [Recovering/Resolving]
  - Off label use [Unknown]
